FAERS Safety Report 7248819-6 (Version None)
Quarter: 2011Q1

REPORT INFORMATION
  Report Type: 
  Country: None (occurrence: None)
  Receive Date: 20110128
  Receipt Date: 20110114
  Transmission Date: 20110831
  Serious: Yes (Other)
  Sender: FDA-Public Use
  Company Number: TN-RANBAXY-2010RR-39083

PATIENT
  Age: 30 Year
  Sex: Female

DRUGS (3)
  1. DEXAMETHASONE [Suspect]
     Indication: ARTHRITIS
  2. DOXYCYCLINE [Suspect]
     Indication: GENITAL INFECTION
     Dosage: UNK
     Dates: start: 19980101
  3. TETRAZEPAM [Suspect]
     Indication: SPINAL OSTEOARTHRITIS
     Dosage: UNK
     Dates: start: 20091201

REACTIONS (3)
  - ERYTHEMA [None]
  - PARAESTHESIA [None]
  - PALMAR-PLANTAR ERYTHRODYSAESTHESIA SYNDROME [None]
